FAERS Safety Report 7916333-8 (Version None)
Quarter: 2011Q4

REPORT INFORMATION
  Report Type: 
  Country: None (occurrence: None)
  Receive Date: 20111116
  Receipt Date: 20111109
  Transmission Date: 20120403
  Serious: No
  Sender: FDA-Public Use
  Company Number: US-BIOGENIDEC-2011BI042911

PATIENT
  Age: 61 Year
  Sex: Female

DRUGS (1)
  1. TYSABRI [Suspect]
     Indication: MULTIPLE SCLEROSIS
     Route: 042
     Dates: start: 20100301

REACTIONS (7)
  - BLOOD URINE PRESENT [None]
  - OBSTRUCTIVE UROPATHY [None]
  - URINARY RETENTION [None]
  - NAUSEA [None]
  - RENAL SCAN ABNORMAL [None]
  - FLANK PAIN [None]
  - KIDNEY ENLARGEMENT [None]
